FAERS Safety Report 19466441 (Version 1)
Quarter: 2021Q2

REPORT INFORMATION
  Report Type: Spontaneous
  Country: DE (occurrence: DE)
  Receive Date: 20210628
  Receipt Date: 20210628
  Transmission Date: 20210717
  Serious: Yes (Life-Threatening, Hospitalization, Other)
  Sender: FDA-Public Use
  Company Number: DE-AMGEN-DEUSP2021095420

PATIENT
  Age: 41 Year
  Sex: Female
  Weight: 100 kg

DRUGS (30)
  1. ACETYLSALICYLIC ACID [Suspect]
     Active Substance: ASPIRIN
     Indication: PRODUCT USED FOR UNKNOWN INDICATION
     Route: 065
  2. CYCLOPHOSPHAMIDE. [Suspect]
     Active Substance: CYCLOPHOSPHAMIDE
     Indication: HODGKIN^S DISEASE
     Dosage: 750 MILLIGRAM/SQ. METER
     Route: 065
     Dates: start: 20160113
  3. DIAZEPAM. [Concomitant]
     Active Substance: DIAZEPAM
  4. BLEOMYCIN [Suspect]
     Active Substance: BLEOMYCIN SULFATE
     Indication: HODGKIN^S DISEASE
     Dosage: 25 MILLIGRAM/SQ. METER DAY 1 AND DAY 15
     Route: 065
     Dates: start: 20151027, end: 201512
  5. VINBLASTINE [Suspect]
     Active Substance: VINBLASTINE
     Indication: HODGKIN^S DISEASE
     Dosage: 6 MILLIGRAM/SQ. METER, QWK
     Route: 065
     Dates: start: 20151027, end: 201512
  6. VINCRISTINE SULFATE. [Suspect]
     Active Substance: VINCRISTINE SULFATE
     Indication: HODGKIN^S DISEASE
     Dosage: 2 MILLIGRAM
     Route: 065
     Dates: start: 20160120
  7. VALSACOR COMP [Concomitant]
     Active Substance: HYDROCHLOROTHIAZIDE\VALSARTAN
  8. VALSARTAN. [Suspect]
     Active Substance: VALSARTAN
     Indication: HYPERTENSION
     Dosage: 80 MILLIGRAM
     Route: 065
     Dates: start: 20140707, end: 201410
  9. PALLADON [Concomitant]
     Active Substance: HYDROMORPHONE
     Dosage: UNK
     Dates: start: 201511
  10. COTRIMOX [Concomitant]
     Active Substance: SULFAMETHOXAZOLE\TRIMETHOPRIM
  11. LYRICA [Concomitant]
     Active Substance: PREGABALIN
     Dosage: UNK
     Dates: start: 2016
  12. MOTILIUM M [Concomitant]
     Active Substance: DOMPERIDONE MALEATE
  13. DICLOFENAC [Suspect]
     Active Substance: DICLOFENAC
     Indication: PRODUCT USED FOR UNKNOWN INDICATION
     Dosage: UNK
     Route: 065
  14. TRANXILIUM [Concomitant]
     Active Substance: CLORAZEPATE DIPOTASSIUM
  15. DOXORUBICINE [DOXORUBICIN] [Suspect]
     Active Substance: DOXORUBICIN
     Indication: HODGKIN^S DISEASE
     Dosage: 25 MILLIGRAM/SQ. METER, QWK
     Route: 065
     Dates: start: 20151027, end: 201512
  16. PARACETAMOL [Suspect]
     Active Substance: ACETAMINOPHEN
     Indication: PRODUCT USED FOR UNKNOWN INDICATION
     Dosage: UNK
     Route: 065
  17. BACLOFEN. [Suspect]
     Active Substance: BACLOFEN
     Indication: PRODUCT USED FOR UNKNOWN INDICATION
     Dosage: 200 MICROGRAM
     Route: 065
  18. HYDROCHLOROTHIAZIDE;VALSARTAN [Suspect]
     Active Substance: HYDROCHLOROTHIAZIDE\VALSARTAN
     Indication: HYPERTENSION
     Dosage: UNK
     Route: 065
     Dates: start: 20140707, end: 201704
  19. CITALOPRAM [Concomitant]
     Active Substance: CITALOPRAM HYDROBROMIDE
  20. PROCARBAZINE [Suspect]
     Active Substance: PROCARBAZINE
     Indication: HODGKIN^S DISEASE
     Dosage: 100 MILLIGRAM/SQ. METER, QD
     Route: 065
     Dates: start: 20190113, end: 20190119
  21. MOVICOL [Concomitant]
     Active Substance: POLYETHYLENE GLYCOL 3350\POTASSIUM CHLORIDE\SODIUM BICARBONATE\SODIUM CHLORIDE
  22. PANTOZOL [Concomitant]
     Active Substance: PANTOPRAZOLE SODIUM
  23. BACLOFEN AL [Concomitant]
     Active Substance: BACLOFEN
  24. NEULASTA [Suspect]
     Active Substance: PEGFILGRASTIM
     Indication: NEUTROPENIA
     Dosage: UNK
     Route: 058
     Dates: start: 20151212, end: 20151212
  25. DACARBAZINE. [Suspect]
     Active Substance: DACARBAZINE
     Indication: HODGKIN^S DISEASE
     Dosage: 375 MILLIGRAM/SQ. METER, DAY 1 AND 1 DAY 15;
     Route: 065
     Dates: start: 20151027, end: 201512
  26. PREDNISOLONE. [Suspect]
     Active Substance: PREDNISOLONE
     Indication: HODGKIN^S DISEASE
     Dosage: 80 MILLIGRAM, QD
     Route: 065
     Dates: start: 20160113, end: 20160126
  27. GRANOCYTE [Suspect]
     Active Substance: LENOGRASTIM
     Indication: NEUTROPENIA
     Dosage: 1 DOSAGE FORM, QD
     Route: 065
     Dates: start: 20160203, end: 20160205
  28. ETOPOSIDE. [Suspect]
     Active Substance: ETOPOSIDE
     Indication: HODGKIN^S DISEASE
     Dosage: 100 MILLIGRAM/SQ. METER, DAY 1?3;
     Route: 065
     Dates: start: 20160113
  29. IBUPROFEN. [Suspect]
     Active Substance: IBUPROFEN
     Indication: PRODUCT USED FOR UNKNOWN INDICATION
     Dosage: UNK
     Route: 065
  30. MORPHINE [Concomitant]
     Active Substance: MORPHINE

REACTIONS (45)
  - Nausea [Recovering/Resolving]
  - Lacunar infarction [Unknown]
  - Dysphagia [Unknown]
  - Respiratory failure [Unknown]
  - Psychogenic seizure [Unknown]
  - Inflammation [Unknown]
  - Hyperhidrosis [Unknown]
  - Tremor [Unknown]
  - Dysaesthesia [Unknown]
  - Tissue infiltration [Unknown]
  - Viral infection [Unknown]
  - Device malfunction [Unknown]
  - Headache [Unknown]
  - Bone pain [Unknown]
  - Obesity [Unknown]
  - Neurological decompensation [Unknown]
  - Sleep apnoea syndrome [Unknown]
  - Arthralgia [Unknown]
  - Vomiting [Recovering/Resolving]
  - Fall [Recovered/Resolved]
  - Fatigue [Unknown]
  - Lung disorder [Unknown]
  - Drug intolerance [Unknown]
  - Sleep disorder [Unknown]
  - Pulmonary congestion [Unknown]
  - Drug abuse [Unknown]
  - Candida infection [Unknown]
  - Renal cyst [Unknown]
  - Hepatic steatosis [Unknown]
  - Dizziness [Unknown]
  - Inguinal hernia [Unknown]
  - Pyrexia [Unknown]
  - Drug hypersensitivity [Unknown]
  - Klebsiella infection [Unknown]
  - Loss of consciousness [Unknown]
  - Abdominal tenderness [Unknown]
  - Tenderness [Unknown]
  - Hypoaesthesia [Unknown]
  - Monoplegia [Unknown]
  - Intervertebral disc disorder [Unknown]
  - Hypothyroidism [Unknown]
  - Uterine enlargement [Unknown]
  - Tachycardia [Unknown]
  - Haematoma [Unknown]
  - Myalgia [Unknown]

NARRATIVE: CASE EVENT DATE: 201512
